FAERS Safety Report 8620241-7 (Version None)
Quarter: 2012Q3

REPORT INFORMATION
  Report Type: 
  Country: None (occurrence: None)
  Receive Date: 20120824
  Receipt Date: 20110210
  Transmission Date: 20120928
  Serious: Yes (Hospitalization)
  Sender: FDA-Public Use
  Company Number: PHHY2011JP117212

PATIENT
  Age: 72 Year
  Sex: Male

DRUGS (6)
  1. PREDNISOLONE [Suspect]
     Dosage: 6 MG, UNK
     Route: 048
     Dates: start: 20080202
  2. PREDNISOLONE [Suspect]
     Indication: POLYMYOSITIS
     Dosage: 10 MG, UNK
     Route: 048
     Dates: start: 20070501
  3. AZATHIOPRINE SODIUM [Suspect]
     Indication: POLYMYOSITIS
     Dosage: 50 MG, UNK
     Dates: start: 20071001
  4. CYCLOSPORINE [Suspect]
     Dosage: 200 MG, QD
     Dates: start: 20071101
  5. CYCLOSPORINE [Suspect]
     Indication: POLYMYOSITIS
     Dosage: 150 MG, QD
     Dates: start: 20070501
  6. CYCLOSPORINE [Suspect]
     Dosage: 175 MG, QD

REACTIONS (9)
  - OPTIC ATROPHY [None]
  - ALDOLASE INCREASED [None]
  - NORMAL TENSION GLAUCOMA [None]
  - POLYMYOSITIS [None]
  - BLOOD CREATINE PHOSPHOKINASE INCREASED [None]
  - PRODUCTIVE COUGH [None]
  - PNEUMONIA [None]
  - PYREXIA [None]
  - MUSCULAR WEAKNESS [None]
